FAERS Safety Report 7907126-6 (Version None)
Quarter: 2011Q4

REPORT INFORMATION
  Report Type: 
  Country: None (occurrence: None)
  Receive Date: 20111110
  Receipt Date: 20110823
  Transmission Date: 20120403
  Serious: Yes (Other)
  Sender: FDA-Public Use
  Company Number: US-ASTRAZENECA-2011SE47156

PATIENT
  Age: 59 Year
  Sex: Female

DRUGS (1)
  1. LISINOPRIL [Suspect]
     Route: 048

REACTIONS (2)
  - HAEMOPTYSIS [None]
  - SLEEP APNOEA SYNDROME [None]
